FAERS Safety Report 12217798 (Version 1)
Quarter: 2016Q1

REPORT INFORMATION
  Report Type: Other
  Country: NL (occurrence: NL)
  Receive Date: 20160329
  Receipt Date: 20160329
  Transmission Date: 20160526
  Serious: Yes (Life-Threatening, Hospitalization, Other)
  Sender: FDA-Public Use
  Company Number: NL-APOTEX-2016AP007305

PATIENT
  Age: 57 Year
  Sex: Female
  Weight: 66 kg

DRUGS (3)
  1. SIMVASTATIN. [Interacting]
     Active Substance: SIMVASTATIN
     Indication: HYPERCHOLESTEROLAEMIA
     Dosage: 20 MG, QD
     Route: 065
     Dates: start: 2008, end: 20160217
  2. ORAP [Interacting]
     Active Substance: PIMOZIDE
     Indication: PSYCHOTIC DISORDER
     Dosage: 1 DF, UNK
     Route: 065
     Dates: start: 2006
  3. DILTIAZEM [Suspect]
     Active Substance: DILTIAZEM
     Indication: ARRHYTHMIA
     Dosage: 200 MG, QD
     Route: 065
     Dates: start: 201507, end: 20160125

REACTIONS (2)
  - Drug interaction [Recovered/Resolved]
  - Cardiac arrest [Recovered/Resolved]

NARRATIVE: CASE EVENT DATE: 20160122
